FAERS Safety Report 17339939 (Version 1)
Quarter: 2020Q1

REPORT INFORMATION
  Report Type: Spontaneous
  Country: US (occurrence: US)
  Receive Date: 20200129
  Receipt Date: 20200129
  Transmission Date: 20200409
  Serious: No
  Sender: FDA-Public Use
  Company Number: US-ALLERGAN-1921752US

PATIENT
  Age: 67 Year
  Sex: Female

DRUGS (4)
  1. BLOOD THINNERS [Concomitant]
     Active Substance: UNSPECIFIED INGREDIENT
     Indication: STENT PLACEMENT
     Dosage: UNK
     Route: 048
  2. CYMBALTA [Concomitant]
     Active Substance: DULOXETINE HYDROCHLORIDE
     Indication: FIBROMYALGIA
     Route: 048
  3. LYRICA [Concomitant]
     Active Substance: PREGABALIN
     Indication: FIBROMYALGIA
  4. BOTOX [Suspect]
     Active Substance: ONABOTULINUMTOXINA
     Indication: FIBROMYALGIA
     Dosage: UNK, SINGLE
     Dates: start: 2006, end: 2006

REACTIONS (2)
  - Off label use [Unknown]
  - Musculoskeletal stiffness [Unknown]
